FAERS Safety Report 18493833 (Version 6)
Quarter: 2025Q3

REPORT INFORMATION
  Report Type: Report from Study
  Country: US (occurrence: US)
  Receive Date: 20201111
  Receipt Date: 20250901
  Transmission Date: 20251020
  Serious: Yes (Hospitalization, Other)
  Sender: TAKEDA
  Company Number: US-TAKEDA-US202014775

PATIENT
  Age: 53 Year
  Sex: Female

DRUGS (2)
  1. HUMAN IMMUNOGLOBULIN G [Suspect]
     Active Substance: HUMAN IMMUNOGLOBULIN G
     Indication: Primary immunodeficiency syndrome
  2. HUMAN IMMUNOGLOBULIN G [Suspect]
     Active Substance: HUMAN IMMUNOGLOBULIN G
     Indication: Immunodeficiency common variable

REACTIONS (12)
  - Blood iron decreased [Recovering/Resolving]
  - Rheumatoid arthritis [Unknown]
  - Syncope [Unknown]
  - Liver disorder [Unknown]
  - Post-acute COVID-19 syndrome [Unknown]
  - Fall [Unknown]
  - Infection [Unknown]
  - Illness [Unknown]
  - Hepatomegaly [Unknown]
  - Inappropriate schedule of product administration [Unknown]
  - Sinusitis [Unknown]
  - Fatigue [Unknown]

NARRATIVE: CASE EVENT DATE: 20250724
